FAERS Safety Report 10188331 (Version 2)
Quarter: 2014Q2

REPORT INFORMATION
  Report Type: Spontaneous
  Country: JP (occurrence: JP)
  Receive Date: 20140522
  Receipt Date: 20140522
  Transmission Date: 20141212
  Serious: Yes (Other)
  Sender: FDA-Public Use
  Company Number: JP-ASTRAZENECA-2014SE25338

PATIENT
  Age: 68 Year
  Sex: Male

DRUGS (8)
  1. NEXIUM [Suspect]
     Indication: HELICOBACTER INFECTION
     Route: 048
     Dates: start: 20140313, end: 20140318
  2. CLARITHROMYCIN [Concomitant]
     Dosage: DOSE UNKNOWN
     Route: 065
  3. SAWACILLIN [Concomitant]
     Dosage: DOSE UNKNOWN
     Route: 065
  4. LASIX [Concomitant]
     Dosage: DOSE UNKNOWN
     Route: 065
  5. LIVALO [Concomitant]
     Dosage: DOSE UNKNOWN
     Route: 065
  6. DIOVAN [Concomitant]
     Dosage: DOSE UNKNOWN
     Route: 065
  7. REBAMIPIDE [Concomitant]
     Dosage: DOSE UNKNOWN
     Route: 065
  8. PERSANTIN [Concomitant]
     Dosage: DOSE UNKNOWN
     Route: 065

REACTIONS (5)
  - Skin ulcer [Not Recovered/Not Resolved]
  - Rash [Not Recovered/Not Resolved]
  - Erythema [Not Recovered/Not Resolved]
  - Drug eruption [Not Recovered/Not Resolved]
  - Therapy cessation [Unknown]
